FAERS Safety Report 8977643 (Version 1)
Quarter: 2012Q4

REPORT INFORMATION
  Report Type: 
  Country: FR (occurrence: FR)
  Receive Date: 20121220
  Receipt Date: 20121220
  Transmission Date: 20130627
  Serious: Yes (Hospitalization)
  Sender: FDA-Public Use
  Company Number: FR-GLAXOSMITHKLINE-B0852587A

PATIENT
  Age: 84 None
  Sex: Male

DRUGS (8)
  1. DEROXAT [Suspect]
     Indication: PRODUCT USED FOR UNKNOWN INDICATION
     Dosage: 20MG Per day
     Route: 048
     Dates: start: 20121008, end: 20121008
  2. VALDOXAN [Suspect]
     Indication: DEPRESSION
     Dosage: 25MG Per day
     Route: 048
     Dates: start: 20120926, end: 20121005
  3. MOCLAMINE [Suspect]
     Indication: PRODUCT USED FOR UNKNOWN INDICATION
     Dosage: 150MG Twice per day
     Route: 048
     Dates: start: 20120905, end: 20121010
  4. XANAX [Suspect]
     Indication: PRODUCT USED FOR UNKNOWN INDICATION
     Route: 048
     Dates: start: 20120926, end: 20121010
  5. MOPRAL [Concomitant]
     Dosage: 1UNIT Per day
     Route: 048
  6. VOLTARENE [Concomitant]
     Dosage: 100MG per day
     Route: 048
  7. LOXAPINE [Concomitant]
     Route: 065
     Dates: start: 20121005
  8. ZOPICLONE [Concomitant]
     Route: 065
     Dates: start: 20121005

REACTIONS (9)
  - Confusional state [Recovered/Resolved]
  - Abnormal behaviour [Recovered/Resolved]
  - Hallucinations, mixed [Recovered/Resolved]
  - Somnolence [Unknown]
  - Agitation [Recovered/Resolved]
  - Encephalopathy [Unknown]
  - Drug intolerance [Recovered/Resolved]
  - Suicide attempt [None]
  - Asphyxia [None]
